FAERS Safety Report 10224379 (Version 1)
Quarter: 2014Q2

REPORT INFORMATION
  Report Type: Spontaneous
  Country: FR (occurrence: FR)
  Receive Date: 20140609
  Receipt Date: 20140609
  Transmission Date: 20141212
  Serious: Yes (Death, Other)
  Sender: FDA-Public Use
  Company Number: PHHY2014FR068392

PATIENT
  Age: 54 Year
  Sex: Female

DRUGS (2)
  1. DOCETAXEL [Suspect]
     Indication: INVASIVE DUCTAL BREAST CARCINOMA
     Dosage: 75 MG/M2, UNK
  2. AFLIBERCEPT [Suspect]
     Indication: INVASIVE DUCTAL BREAST CARCINOMA
     Dosage: 2 MG/KG, UNK

REACTIONS (7)
  - Hepatic failure [Fatal]
  - Invasive ductal breast carcinoma [Fatal]
  - Malignant neoplasm progression [Fatal]
  - Portal vein thrombosis [Unknown]
  - Renal atrophy [Unknown]
  - Epistaxis [Unknown]
  - Drug effect incomplete [Unknown]
